FAERS Safety Report 6540149-0 (Version None)
Quarter: 2010Q1

REPORT INFORMATION
  Report Type: 
  Country: None (occurrence: None)
  Receive Date: 20100112
  Receipt Date: 20091228
  Transmission Date: 20100710
  Serious: Yes (Hospitalization)
  Sender: FDA-Public Use
  Company Number: 001719

PATIENT
  Sex: Male

DRUGS (4)
  1. VIMPAT [Suspect]
     Dosage: (150 MG BID, ORAL), (400 MG)
     Route: 048
     Dates: start: 20090601
  2. KEPPRA [Suspect]
     Indication: EPILEPSY
     Dosage: (1500 MG BID ORAL)
     Route: 048
     Dates: start: 20070101
  3. LAMOTRIGINE [Suspect]
     Indication: EPILEPSY
     Dosage: (175 MG BID ORAL)
     Route: 048
     Dates: start: 20030101
  4. FRISIUM (FRISIUM) (NOT SPECIFIED) [Suspect]
     Indication: EPILEPSY
     Dosage: (15 MG BID ORAL)
     Route: 048
     Dates: start: 20030101

REACTIONS (2)
  - CONDITION AGGRAVATED [None]
  - STATUS EPILEPTICUS [None]
